FAERS Safety Report 4296472-6 (Version None)
Quarter: 2004Q1

REPORT INFORMATION
  Report Type: 
  Country: None (occurrence: None)
  Receive Date: 20040217
  Receipt Date: 20040205
  Transmission Date: 20041129
  Serious: Yes (Hospitalization)
  Sender: FDA-Public Use
  Company Number: JP-BRISTOL-MYERS SQUIBB COMPANY-12503470

PATIENT
  Age: 60 Year
  Sex: Male

DRUGS (3)
  1. EFAVIRENZ CAPS [Suspect]
     Indication: HIV INFECTION
     Route: 048
     Dates: start: 20010801, end: 20021201
  2. LAMIVUDINE [Concomitant]
     Dates: start: 20010801, end: 20021201
  3. STAVUDINE [Concomitant]
     Dates: start: 20010801, end: 20021201

REACTIONS (4)
  - DYSPEPSIA [None]
  - NAUSEA [None]
  - NEUROMYOPATHY [None]
  - VOMITING [None]
